FAERS Safety Report 4805645-2 (Version None)
Quarter: 2005Q4

REPORT INFORMATION
  Report Type: 
  Country: None (occurrence: None)
  Receive Date: 20051018
  Receipt Date: 20051007
  Transmission Date: 20060501
  Serious: Yes (Hospitalization, Other)
  Sender: FDA-Public Use
  Company Number: 2004075223

PATIENT
  Age: 89 Year
  Sex: Female
  Weight: 65.7716 kg

DRUGS (8)
  1. DILANTIN [Suspect]
     Indication: CONVULSION
     Dosage: 300 MG (100 MG, 3 IN 1 D), ORAL
     Route: 048
     Dates: start: 20040901
  2. PLAVIX [Concomitant]
  3. NORVASC [Concomitant]
  4. ATENOLOL [Concomitant]
  5. OYSTER SHELL CALCIUM (CALCIUM CARBONATE) [Concomitant]
  6. ROCALTROL [Concomitant]
  7. EVISTA [Concomitant]
  8. GLUCOVANCE [Concomitant]

REACTIONS (9)
  - CEREBRAL ATROPHY [None]
  - CEREBROVASCULAR ACCIDENT [None]
  - CONVULSION [None]
  - ENCEPHALOPATHY [None]
  - FALL [None]
  - GENERAL PHYSICAL CONDITION ABNORMAL [None]
  - ORAL INTAKE REDUCED [None]
  - SOMNOLENCE [None]
  - TREMOR [None]
